FAERS Safety Report 4569526-4 (Version None)
Quarter: 2005Q1

REPORT INFORMATION
  Report Type: 
  Country: None (occurrence: None)
  Receive Date: 20050203
  Receipt Date: 20050124
  Transmission Date: 20050727
  Serious: Yes (Death, Hospitalization)
  Sender: FDA-Public Use
  Company Number: US-JNJFOC-20040902328

PATIENT
  Sex: Male

DRUGS (4)
  1. REMINYL [Suspect]
     Dosage: NO DRUG
     Route: 049
  2. ARICEPT [Concomitant]
  3. RISPERIDONE [Concomitant]
     Indication: DELUSIONAL DISORDER, UNSPECIFIED TYPE
  4. NAMENDA [Concomitant]

REACTIONS (4)
  - ABNORMAL BEHAVIOUR [None]
  - CONFUSIONAL STATE [None]
  - MANIA [None]
  - PNEUMONIA [None]
